FAERS Safety Report 6751555-3 (Version None)
Quarter: 2010Q2

REPORT INFORMATION
  Report Type: 
  Country: None (occurrence: None)
  Receive Date: 20100602
  Receipt Date: 20100527
  Transmission Date: 20101027
  Serious: Yes (Hospitalization)
  Sender: FDA-Public Use
  Company Number: A0862029A

PATIENT
  Age: 28 Year
  Sex: Female

DRUGS (3)
  1. ACITRETIN [Suspect]
     Indication: PSORIASIS
     Route: 048
     Dates: start: 20080101, end: 20081201
  2. MIFEPRISTONE [Suspect]
     Dosage: 200MG THREE TIMES PER DAY
     Route: 048
     Dates: start: 20100430
  3. CYTOTEC [Suspect]
     Dosage: 200MCG TWICE PER DAY
     Route: 048

REACTIONS (2)
  - ABORTION INDUCED [None]
  - DRUG EXPOSURE BEFORE PREGNANCY [None]
